FAERS Safety Report 6704620-0 (Version None)
Quarter: 2010Q2

REPORT INFORMATION
  Report Type: 
  Country: None (occurrence: None)
  Receive Date: 20100430
  Receipt Date: 20100126
  Transmission Date: 20101027
  Serious: Yes (Other)
  Sender: FDA-Public Use
  Company Number: US-JNJFOC-20100205940

PATIENT
  Age: 55 Year
  Sex: Female
  Weight: 62.14 kg

DRUGS (2)
  1. EXTRA STRENGTH TYLENOL [Suspect]
     Route: 048
  2. EXTRA STRENGTH TYLENOL [Suspect]
     Indication: TOOTH ABSCESS
     Route: 048

REACTIONS (3)
  - INJURY [None]
  - PRODUCT QUALITY ISSUE [None]
  - SYNCOPE [None]
